FAERS Safety Report 5822186-4 (Version None)
Quarter: 2008Q3

REPORT INFORMATION
  Report Type: 
  Country: None (occurrence: None)
  Receive Date: 20080722
  Receipt Date: 20080722
  Transmission Date: 20090109
  Serious: No
  Sender: FDA-Public Use
  Company Number: None

PATIENT
  Age: 36 Year
  Sex: Male
  Weight: 74.8435 kg

DRUGS (4)
  1. NAPROXEN [Suspect]
     Indication: ARTHRALGIA
     Dosage: PO 500MG BID 9PM DOSE X1 ONLY
     Route: 048
     Dates: start: 20080619
  2. PHENOBARBITAL TAB [Concomitant]
  3. MULTI-VITAMIN [Concomitant]
  4. THIAMINE HCL [Concomitant]

REACTIONS (2)
  - SCROTAL OEDEMA [None]
  - SWOLLEN TONGUE [None]
